FAERS Safety Report 4793571-7 (Version None)
Quarter: 2005Q4

REPORT INFORMATION
  Report Type: 
  Country: None (occurrence: None)
  Receive Date: 20051006
  Receipt Date: 20050923
  Transmission Date: 20060501
  Serious: Yes (Hospitalization, Other)
  Sender: FDA-Public Use
  Company Number: KII-2005-0018731

PATIENT
  Age: 2 Year
  Sex: Female

DRUGS (5)
  1. OXYCONTIN [Suspect]
     Indication: ACCIDENTAL EXPOSURE
     Dosage: ORAL
     Route: 048
  2. MORPHINE [Suspect]
     Indication: ACCIDENTAL EXPOSURE
     Dosage: ORAL
     Route: 048
  3. BENZODIAPEZINE DERIVATIVES [Suspect]
     Indication: ACCIDENTAL EXPOSURE
     Dosage: ORAL
     Route: 048
  4. OTHER HYPNOTICS AND SEDATIVES [Suspect]
     Indication: ACCIDENTAL EXPOSURE
  5. ANTIDEPRESSANTS [Suspect]
     Indication: ACCIDENTAL EXPOSURE

REACTIONS (3)
  - ACCIDENTAL DRUG INTAKE BY CHILD [None]
  - RESPIRATORY FAILURE [None]
  - TACHYCARDIA [None]
